FAERS Safety Report 8217333-3 (Version None)
Quarter: 2012Q1

REPORT INFORMATION
  Report Type: 
  Country: None (occurrence: None)
  Receive Date: 20120313
  Receipt Date: 20120227
  Transmission Date: 20120608
  Serious: Yes (Hospitalization)
  Sender: FDA-Public Use
  Company Number: GB-007782

PATIENT
  Age: 13 Year
  Sex: Male

DRUGS (1)
  1. DDAVP [Suspect]
     Indication: PRODUCT USED FOR UNKNOWN INDICATION
     Dosage: ORAL, ORAL
     Route: 048
     Dates: start: 20120123

REACTIONS (3)
  - DEHYDRATION [None]
  - PRODUCT QUALITY ISSUE [None]
  - DRUG INEFFECTIVE [None]
